FAERS Safety Report 13726509 (Version 11)
Quarter: 2022Q3

REPORT INFORMATION
  Report Type: Report from Study
  Country: JP (occurrence: JP)
  Receive Date: 20170707
  Receipt Date: 20220804
  Transmission Date: 20221027
  Serious: Yes (Hospitalization, Other)
  Sender: FDA-Public Use
  Company Number: JP-VIIVHC-JP2017JPN102802AA

PATIENT

DRUGS (1)
  1. ABACAVIR SULFATE\DOLUTEGRAVIR SODIUM\LAMIVUDINE [Suspect]
     Active Substance: ABACAVIR SULFATE\DOLUTEGRAVIR SODIUM\LAMIVUDINE
     Indication: HIV infection
     Dosage: 1 DF, 1D
     Route: 048
     Dates: start: 20160714, end: 20210920

REACTIONS (11)
  - Pneumocystis jirovecii pneumonia [Recovered/Resolved]
  - Immune reconstitution inflammatory syndrome [Recovered/Resolved]
  - Sinusitis [Recovered/Resolved]
  - Blood bilirubin increased [Recovered/Resolved]
  - Urachal abnormality [Recovered/Resolved]
  - Urachal abscess [Recovered/Resolved]
  - Blood creatinine increased [Not Recovered/Not Resolved]
  - Vertigo [Recovered/Resolved]
  - Tinnitus [Recovered/Resolved]
  - Ear discomfort [Recovered/Resolved]
  - Discouragement [Recovering/Resolving]

NARRATIVE: CASE EVENT DATE: 20160725
